FAERS Safety Report 5277633-6 (Version None)
Quarter: 2007Q1

REPORT INFORMATION
  Report Type: 
  Country: None (occurrence: None)
  Receive Date: 20061213
  Receipt Date: 20050310
  Transmission Date: 20070707
  Serious: No
  Sender: FDA-Public Use
  Company Number: 2005UW03840

PATIENT
  Age: 46 Year
  Sex: Female
  Weight: 69.399 kg

DRUGS (4)
  1. SEROQUEL [Suspect]
     Indication: BIPOLAR DISORDER
     Dosage: 400 MG PO
     Route: 048
     Dates: start: 20040701
  2. SEROQUEL [Suspect]
     Indication: MANIA
     Dosage: 400 MG PO
     Route: 048
     Dates: start: 20040701
  3. SEROQUEL [Suspect]
     Indication: BIPOLAR DISORDER
     Dosage: 200 MG QD PO
     Route: 048
  4. SEROQUEL [Suspect]
     Indication: MANIA
     Dosage: 200 MG QD PO
     Route: 048

REACTIONS (2)
  - HYPERGLYCAEMIA [None]
  - TARDIVE DYSKINESIA [None]
